FAERS Safety Report 4880085-9 (Version None)
Quarter: 2006Q1

REPORT INFORMATION
  Report Type: 
  Country: None (occurrence: None)
  Receive Date: 20060113
  Receipt Date: 20051129
  Transmission Date: 20060701
  Serious: Yes (Hospitalization)
  Sender: FDA-Public Use
  Company Number: FR-BRISTOL-MYERS SQUIBB COMPANY-13199112

PATIENT
  Age: 43 Year
  Sex: Male

DRUGS (2)
  1. REYATAZ [Suspect]
     Indication: HIV INFECTION
     Dosage: GIVEN FROM SEP-2004 TO DEC-2004 AND RESTARTED 27-FEB-2005 TO 2005.
     Route: 048
     Dates: start: 20040901, end: 20050321
  2. NORVIR [Suspect]
     Indication: HIV INFECTION
     Dates: start: 20050227, end: 20050321

REACTIONS (6)
  - EPSTEIN-BARR VIRUS ANTIBODY POSITIVE [None]
  - HAEMOLYTIC ANAEMIA [None]
  - HEPATOSPLENOMEGALY [None]
  - HYPERBILIRUBINAEMIA [None]
  - LYMPHADENOPATHY [None]
  - OCULAR ICTERUS [None]
